FAERS Safety Report 10710219 (Version 1)
Quarter: 2015Q1

REPORT INFORMATION
  Report Type: Spontaneous
  Country: GB (occurrence: None)
  Receive Date: 20150112
  Receipt Date: 20150112
  Transmission Date: 20150721
  Serious: Yes (Other)
  Sender: FDA-Public Use
  Company Number: SP08815

PATIENT
  Age: 19 Year
  Sex: Female
  Weight: 60.77 kg

DRUGS (4)
  1. DESLORATADINE. [Concomitant]
     Active Substance: DESLORATADINE
  2. MOVIPREP [Suspect]
     Active Substance: ASCORBIC ACID\POLYETHYLENE GLYCOL 3350\POTASSIUM CHLORIDE\SODIUM ASCORBATE\SODIUM CHLORIDE\SODIUM SULFATE
     Dosage: ORAL
     Route: 048
     Dates: start: 20141216, end: 20141216
  3. LEVEST [Concomitant]
  4. MEBEVERINE [Concomitant]
     Active Substance: MEBEVERINE

REACTIONS (1)
  - Anaphylactic reaction [None]

NARRATIVE: CASE EVENT DATE: 20141216
